FAERS Safety Report 21678492 (Version 1)
Quarter: 2022Q4

REPORT INFORMATION
  Report Type: Spontaneous
  Country: US (occurrence: US)
  Receive Date: 20221203
  Receipt Date: 20221203
  Transmission Date: 20230113
  Serious: Yes (Death)
  Sender: FDA-Public Use
  Company Number: US-002147023-NVSC2022US280369

PATIENT
  Age: 86 Year
  Sex: Male

DRUGS (1)
  1. METFORMIN [Suspect]
     Active Substance: METFORMIN HYDROCHLORIDE
     Indication: Product used for unknown indication
     Dosage: UNK
     Route: 065

REACTIONS (9)
  - Hypertension [Fatal]
  - Bradycardia [Fatal]
  - Electrocardiogram QRS complex prolonged [Fatal]
  - Electrocardiogram QT prolonged [Fatal]
  - Respiratory depression [Fatal]
  - Metabolic acidosis [Fatal]
  - Anion gap increased [Fatal]
  - Acute kidney injury [Fatal]
  - Cardiac arrest [Fatal]
